FAERS Safety Report 8338254-1 (Version None)
Quarter: 2012Q2

REPORT INFORMATION
  Report Type: 
  Country: None (occurrence: None)
  Receive Date: 20120504
  Receipt Date: 20120424
  Transmission Date: 20120825
  Serious: Yes (Hospitalization, Disabling, Other)
  Sender: FDA-Public Use
  Company Number: US-MERCK-1202USA02289

PATIENT
  Age: 56 Year
  Sex: Female

DRUGS (20)
  1. FOSAMAX [Suspect]
     Indication: OSTEOPOROSIS
     Route: 048
     Dates: start: 19990101, end: 20090601
  2. MULTI-VITAMINS [Concomitant]
     Route: 065
  3. BENADRYL [Concomitant]
     Route: 065
  4. FOSAMAX [Suspect]
     Route: 048
  5. KEFLEX [Concomitant]
     Route: 065
  6. MACRODANTIN [Concomitant]
     Indication: URINARY TRACT INFECTION
     Route: 065
  7. NASONEX [Concomitant]
     Indication: MULTIPLE ALLERGIES
     Route: 055
     Dates: start: 20061201
  8. ASCORBIC ACID [Concomitant]
     Route: 065
  9. ALLEGRA-D 12 HOUR [Concomitant]
     Indication: MULTIPLE ALLERGIES
     Route: 065
  10. VITAMIN D (UNSPECIFIED) [Concomitant]
     Route: 065
  11. ALLEGRA [Concomitant]
     Indication: MULTIPLE ALLERGIES
     Route: 065
  12. CALCIUM (UNSPECIFIED) [Concomitant]
     Route: 065
  13. PREMPRO [Concomitant]
     Route: 065
     Dates: start: 19960523
  14. RHINOCORT [Concomitant]
     Indication: MULTIPLE ALLERGIES
     Route: 065
  15. FOSAMAX [Suspect]
     Route: 048
     Dates: start: 19980817
  16. ALENDRONATE SODIUM [Suspect]
     Route: 065
  17. CLARITIN [Concomitant]
     Route: 048
     Dates: start: 19980817
  18. RHINOCORT (BECLOMETHASONE DIPROPIONATE) [Concomitant]
     Dosage: 2 PUFFS
     Route: 055
     Dates: start: 19951017
  19. MACROBID [Concomitant]
     Indication: URINARY TRACT INFECTION
     Route: 065
  20. CLARITIN-D [Concomitant]
     Indication: NASAL OBSTRUCTION
     Route: 048

REACTIONS (50)
  - BLADDER DISORDER [None]
  - DEVICE FAILURE [None]
  - SINUS DISORDER [None]
  - ROSACEA [None]
  - STAPHYLOCOCCAL INFECTION [None]
  - SEROMA [None]
  - ADVERSE DRUG REACTION [None]
  - HAEMORRHOIDS [None]
  - SCIATICA [None]
  - UPPER RESPIRATORY TRACT INFECTION [None]
  - EUSTACHIAN TUBE DYSFUNCTION [None]
  - DRUG INEFFECTIVE [None]
  - DOLICHOCOLON [None]
  - COLITIS [None]
  - THERAPEUTIC RESPONSE DECREASED [None]
  - FEMORAL NECK FRACTURE [None]
  - CHRONIC SINUSITIS [None]
  - SKIN DISCOLOURATION [None]
  - TYMPANOSCLEROSIS [None]
  - TRIGGER FINGER [None]
  - DYSPEPSIA [None]
  - SINUS POLYP [None]
  - ANAEMIA [None]
  - ASTHMA [None]
  - RASH [None]
  - TENDONITIS [None]
  - GASTROINTESTINAL DISORDER [None]
  - DIARRHOEA [None]
  - ILIOTIBIAL BAND SYNDROME [None]
  - ABDOMINAL ADHESIONS [None]
  - CHOLECYSTITIS ACUTE [None]
  - SINUSITIS [None]
  - BURSITIS [None]
  - DERMATITIS [None]
  - OSTEOARTHRITIS [None]
  - POST PROCEDURAL HAEMORRHAGE [None]
  - CUBITAL TUNNEL SYNDROME [None]
  - PARANASAL CYST [None]
  - OSTEOPENIA [None]
  - FEMUR FRACTURE [None]
  - BONE DISORDER [None]
  - IMPAIRED HEALING [None]
  - GASTROOESOPHAGEAL REFLUX DISEASE [None]
  - DIVERTICULUM [None]
  - NASAL SEPTUM DEVIATION [None]
  - CHANGE OF BOWEL HABIT [None]
  - FRACTURE NONUNION [None]
  - TONSILLAR DISORDER [None]
  - HYPERTENSION [None]
  - HERNIA [None]
